FAERS Safety Report 8757462 (Version 1)
Quarter: 2012Q4

REPORT INFORMATION
  Report Type: 
  Country: JP (occurrence: JP)
  Receive Date: 20120828
  Receipt Date: 20120828
  Transmission Date: 20130627
  Serious: Yes (Death)
  Sender: FDA-Public Use
  Company Number: PHHY2012JP073665

PATIENT
  Age: 60 Year
  Sex: Female

DRUGS (2)
  1. CICLOSPORIN [Suspect]
     Indication: INTERSTITIAL LUNG DISEASE
     Dosage: 200 mg, UNK
  2. PREDNISOLONE [Suspect]
     Indication: INTERSTITIAL LUNG DISEASE
     Dosage: 40 mg, UNK

REACTIONS (4)
  - Interstitial lung disease [Fatal]
  - Diffuse alveolar damage [Fatal]
  - Dyspnoea [Fatal]
  - Drug ineffective [Fatal]
